FAERS Safety Report 8416537-4 (Version None)
Quarter: 2012Q2

REPORT INFORMATION
  Report Type: 
  Country: None (occurrence: None)
  Receive Date: 20120606
  Receipt Date: 20120530
  Transmission Date: 20120825
  Serious: Yes (Hospitalization, Congenital Anomaly)
  Sender: FDA-Public Use
  Company Number: US-GLAXOSMITHKLINE-A0980256A

PATIENT
  Sex: Male
  Weight: 3.1 kg

DRUGS (3)
  1. PROZAC [Suspect]
     Indication: DEPRESSION
     Dosage: 20MG PER DAY
     Route: 064
     Dates: end: 20011201
  2. VITAMIN AND MINERAL PRENATAL SUPPLEMENT W/ FOLIC ACID CAP [Concomitant]
  3. PAXIL [Suspect]
     Indication: DEPRESSION
     Dosage: 20MG PER DAY
     Route: 064
     Dates: start: 20010101, end: 20010101

REACTIONS (3)
  - PREMATURE CLOSURE OF CRANIAL SUTURES [None]
  - CONGENITAL HYDRONEPHROSIS [None]
  - FOETAL EXPOSURE DURING PREGNANCY [None]
